FAERS Safety Report 6120901-6 (Version None)
Quarter: 2009Q1

REPORT INFORMATION
  Report Type: 
  Country: None (occurrence: None)
  Receive Date: 20090317
  Receipt Date: 20090309
  Transmission Date: 20090719
  Serious: Yes (Hospitalization)
  Sender: FDA-Public Use
  Company Number: US-AVENTIS-200912350GDDC

PATIENT
  Age: 87 Year
  Sex: Male
  Weight: 52.6 kg

DRUGS (5)
  1. TAXOTERE [Suspect]
     Route: 042
     Dates: start: 20080919, end: 20090227
  2. PREDNISONE [Suspect]
     Route: 048
     Dates: start: 20080919, end: 20090305
  3. CODE UNBROKEN [Suspect]
     Route: 048
     Dates: start: 20080919, end: 20090305
  4. DEXAMETHASONE TAB [Suspect]
     Dates: start: 20080919, end: 20090227
  5. COUMADIN [Concomitant]
     Route: 048

REACTIONS (3)
  - INTERNATIONAL NORMALISED RATIO INCREASED [None]
  - PNEUMONIA [None]
  - URINARY TRACT INFECTION [None]
